FAERS Safety Report 7532045-7 (Version None)
Quarter: 2011Q2

REPORT INFORMATION
  Report Type: 
  Country: None (occurrence: None)
  Receive Date: 20110608
  Receipt Date: 20110602
  Transmission Date: 20111010
  Serious: Yes (Hospitalization)
  Sender: FDA-Public Use
  Company Number: US-SANOFI-AVENTIS-2011SA035305

PATIENT
  Sex: Male

DRUGS (2)
  1. PLAVIX [Suspect]
     Route: 048
     Dates: start: 20110101
  2. PLAVIX [Suspect]
     Route: 048
     Dates: end: 20110101

REACTIONS (8)
  - THROMBOSIS [None]
  - WEIGHT DECREASED [None]
  - SYNCOPE [None]
  - VISUAL ACUITY REDUCED [None]
  - PERIPHERAL ARTERIAL OCCLUSIVE DISEASE [None]
  - ELECTROLYTE IMBALANCE [None]
  - DISEASE PROGRESSION [None]
  - ARTERIAL STENOSIS [None]
